FAERS Safety Report 6436445-8 (Version None)
Quarter: 2009Q4

REPORT INFORMATION
  Report Type: 
  Country: None (occurrence: None)
  Receive Date: 20091110
  Receipt Date: 20091110
  Transmission Date: 20100525
  Serious: No
  Sender: FDA-Public Use
  Company Number: None

PATIENT
  Age: 61 Year
  Sex: Female
  Weight: 43.9989 kg

DRUGS (1)
  1. TETRACYCLINE [Suspect]
     Indication: GASTRIC ULCER
     Dosage: 1 CAPSULE 4 TIMES A DAY PO
     Route: 048
     Dates: start: 20091102, end: 20091107

REACTIONS (4)
  - DIARRHOEA [None]
  - GLOSSODYNIA [None]
  - ORAL CANDIDIASIS [None]
  - ORAL PAIN [None]
